FAERS Safety Report 4657919-6 (Version None)
Quarter: 2005Q2

REPORT INFORMATION
  Report Type: 
  Country: None (occurrence: None)
  Receive Date: 20050510
  Receipt Date: 20050428
  Transmission Date: 20051028
  Serious: Yes (Other)
  Sender: FDA-Public Use
  Company Number: PT-SANOFI-SYNTHELABO-F01200500679

PATIENT
  Age: 60 Year
  Sex: Male

DRUGS (5)
  1. OXALIPLATIN [Suspect]
     Route: 042
     Dates: start: 20050401, end: 20050401
  2. FLUOROURACIL [Suspect]
     Route: 042
  3. FOLINIC ACID [Suspect]
     Route: 042
  4. GLUCONATE [Concomitant]
     Indication: PREMEDICATION
  5. DEXTROSE [Concomitant]
     Indication: PREMEDICATION

REACTIONS (5)
  - CHILLS [None]
  - HYPERTENSION [None]
  - HYPOGLYCAEMIA [None]
  - HYPOTHERMIA [None]
  - VOMITING [None]
